FAERS Safety Report 15008302 (Version 1)
Quarter: 2018Q2

REPORT INFORMATION
  Report Type: Spontaneous
  Country: US (occurrence: US)
  Receive Date: 20180613
  Receipt Date: 20180613
  Transmission Date: 20180711
  Serious: No
  Sender: FDA-Public Use
  Company Number: US-DRREDDYS-USA/USA/17/0094256

PATIENT
  Age: 71 Year
  Sex: Female
  Weight: 63.6 kg

DRUGS (1)
  1. ESZOPICLONE. [Suspect]
     Active Substance: ESZOPICLONE
     Indication: SLEEP DISORDER
     Route: 065

REACTIONS (2)
  - Product quality issue [Unknown]
  - Drug ineffective [Unknown]
